FAERS Safety Report 5196084-6 (Version None)
Quarter: 2006Q4

REPORT INFORMATION
  Report Type: 
  Country: None (occurrence: None)
  Receive Date: 20061226
  Receipt Date: 20061212
  Transmission Date: 20070319
  Serious: Yes (Death, Hospitalization)
  Sender: FDA-Public Use
  Company Number: HQWYE992113DEC06

PATIENT
  Age: 26 Year
  Sex: Male

DRUGS (2)
  1. EFFEXOR [Suspect]
     Dosage: 112 TABLETS, 150 MG EACH (OVERDOSE AMOUNT) ORAL
     Route: 048
  2. ALCOHOL (ETHANOL, ) [Suspect]
     Dosage: ^4 CANS OF BEER^

REACTIONS (32)
  - ACUTE RESPIRATORY DISTRESS SYNDROME [None]
  - AGITATION [None]
  - BLOOD CREATINE PHOSPHOKINASE INCREASED [None]
  - BLOOD GLUCOSE DECREASED [None]
  - BLOOD SODIUM INCREASED [None]
  - CARDIAC ARREST [None]
  - COAGULOPATHY [None]
  - COMPLETED SUICIDE [None]
  - DISSEMINATED INTRAVASCULAR COAGULATION [None]
  - DRUG TOXICITY [None]
  - ELECTROCARDIOGRAM QRS COMPLEX PROLONGED [None]
  - EPISTAXIS [None]
  - EYE HAEMORRHAGE [None]
  - GRAND MAL CONVULSION [None]
  - HAEMOGLOBIN DECREASED [None]
  - HEPATIC FAILURE [None]
  - HYPERHIDROSIS [None]
  - HYPERTENSION [None]
  - HYPOTENSION [None]
  - HYPOXIA [None]
  - INTENTIONAL OVERDOSE [None]
  - METABOLIC ACIDOSIS [None]
  - MOUTH HAEMORRHAGE [None]
  - MULTI-ORGAN FAILURE [None]
  - OLIGURIA [None]
  - PYREXIA [None]
  - RENAL IMPAIRMENT [None]
  - RHABDOMYOLYSIS [None]
  - SINUS TACHYCARDIA [None]
  - TACHYCARDIA [None]
  - THROMBOCYTOPENIA [None]
  - TREMOR [None]
